FAERS Safety Report 11965277 (Version 1)
Quarter: 2016Q1

REPORT INFORMATION
  Report Type: Spontaneous
  Country: US (occurrence: None)
  Receive Date: 20160125
  Receipt Date: 20160125
  Transmission Date: 20160526
  Serious: Yes (Disabling)
  Sender: FDA-Public Use
  Company Number: None

PATIENT
  Age: 27 Year
  Sex: Female
  Weight: 63.5 kg

DRUGS (3)
  1. HERBALIFE MULTIVITAMIN SUPPLEMENT [Concomitant]
  2. LEVOTHYROXINE. [Concomitant]
     Active Substance: LEVOTHYROXINE
  3. NEXPLANON [Suspect]
     Active Substance: ETONOGESTREL

REACTIONS (4)
  - Uterine leiomyoma [None]
  - Menorrhagia [None]
  - Dysmenorrhoea [None]
  - Drug interaction [None]

NARRATIVE: CASE EVENT DATE: 20150201
